FAERS Safety Report 13560856 (Version 1)
Quarter: 2017Q2

REPORT INFORMATION
  Report Type: Spontaneous
  Country: US (occurrence: US)
  Receive Date: 20170518
  Receipt Date: 20170518
  Transmission Date: 20170830
  Serious: No
  Sender: FDA-Public Use
  Company Number: US-ROCHE-1002431

PATIENT
  Age: 58 Year
  Sex: Female

DRUGS (3)
  1. NAPROXEN SODIUM. [Suspect]
     Active Substance: NAPROXEN SODIUM
     Indication: PAIN
     Route: 048
  2. VITAMIN B12 [Concomitant]
     Active Substance: CYANOCOBALAMIN
     Route: 065
  3. ALKA-SELTZER PLUS COLD SPARKLING ORIGINAL (ASPIRIN\CHLORPHENIRAMINE\PHENYLEPHRINE) [Interacting]
     Active Substance: ASPIRIN\CHLORPHENIRAMINE\PHENYLEPHRINE
     Indication: SEASONAL ALLERGY
     Route: 048

REACTIONS (2)
  - Chapped lips [Not Recovered/Not Resolved]
  - Rash [Not Recovered/Not Resolved]
